FAERS Safety Report 7831927-6 (Version None)
Quarter: 2011Q4

REPORT INFORMATION
  Report Type: 
  Country: None (occurrence: None)
  Receive Date: 20111021
  Receipt Date: 20111018
  Transmission Date: 20120403
  Serious: Yes (Hospitalization, Other)
  Sender: FDA-Public Use
  Company Number: US-MERCK-1109USA00518

PATIENT
  Age: 73 Year
  Sex: Female
  Weight: 56 kg

DRUGS (9)
  1. COREG [Concomitant]
     Route: 065
  2. FOSAMAX [Suspect]
     Indication: BONE DISORDER
     Route: 048
     Dates: start: 20041001, end: 20071201
  3. ALENDRONATE SODIUM [Concomitant]
     Indication: BONE DISORDER
     Route: 048
     Dates: start: 20081201
  4. FOSAMAX [Suspect]
     Route: 048
  5. ALENDRONATE SODIUM [Concomitant]
     Indication: PROPHYLAXIS
     Route: 048
     Dates: start: 20081201
  6. VYTORIN [Concomitant]
     Route: 048
  7. FOSAMAX [Suspect]
     Route: 048
  8. FOSAMAX [Suspect]
     Indication: PROPHYLAXIS
     Route: 048
     Dates: start: 20041001, end: 20071201
  9. LISINOPRIL [Concomitant]
     Route: 065

REACTIONS (25)
  - SPONDYLOLISTHESIS [None]
  - HIP ARTHROPLASTY [None]
  - CARDIOMYOPATHY [None]
  - LUMBAR RADICULOPATHY [None]
  - INTERVERTEBRAL DISC DEGENERATION [None]
  - CORONARY ARTERY DISEASE [None]
  - INTERVERTEBRAL DISC PROTRUSION [None]
  - PULMONARY HYPERTENSION [None]
  - FACET JOINT SYNDROME [None]
  - FEMUR FRACTURE [None]
  - BREAST CANCER [None]
  - BURSITIS [None]
  - SPINAL OSTEOARTHRITIS [None]
  - GASTROOESOPHAGEAL REFLUX DISEASE [None]
  - THYROID DISORDER [None]
  - HAEMORRHAGIC ANAEMIA [None]
  - COMPRESSION FRACTURE [None]
  - MITRAL VALVE PROLAPSE [None]
  - GASTROENTERITIS VIRAL [None]
  - FUNGAL INFECTION [None]
  - VENTRICULAR TACHYCARDIA [None]
  - INTERMITTENT CLAUDICATION [None]
  - SCIATICA [None]
  - DEPRESSION [None]
  - FALL [None]
